FAERS Safety Report 9386321 (Version 1)
Quarter: 2013Q3

REPORT INFORMATION
  Report Type: Spontaneous
  Country: ZA (occurrence: ZA)
  Receive Date: 20130708
  Receipt Date: 20130708
  Transmission Date: 20140515
  Serious: Yes (Other)
  Sender: FDA-Public Use
  Company Number: ZA-ROCHE-1245160

PATIENT
  Age: 67 Year
  Sex: Male
  Weight: 83 kg

DRUGS (5)
  1. MIRCERA [Suspect]
     Indication: NEPHROGENIC ANAEMIA
     Route: 058
     Dates: end: 20130605
  2. ECOTRIN [Concomitant]
     Indication: ANTICOAGULANT THERAPY
     Dosage: HIGH DOSE
     Route: 065
  3. SIMVASTATIN [Concomitant]
     Indication: BLOOD CHOLESTEROL INCREASED
     Route: 065
  4. DISPRIN [Concomitant]
     Route: 065
  5. CELEBREX [Concomitant]
     Indication: PAIN

REACTIONS (1)
  - Cerebrovascular accident [Not Recovered/Not Resolved]
